FAERS Safety Report 12237200 (Version 1)
Quarter: 2016Q2

REPORT INFORMATION
  Report Type: Spontaneous
  Country: US (occurrence: None)
  Receive Date: 20160404
  Receipt Date: 20160404
  Transmission Date: 20160815
  Serious: Yes (Other)
  Sender: FDA-Public Use
  Company Number: None

PATIENT
  Age: 71 Year
  Sex: Male
  Weight: 70.31 kg

DRUGS (1)
  1. DORZOLAMIDE-TIMOLOL, EYE DRO, 1 GTT HI-TECH PHARMACEUTICAL [Suspect]
     Active Substance: DORZOLAMIDE\TIMOLOL
     Indication: GLAUCOMA
     Route: 031

REACTIONS (3)
  - Skin abrasion [None]
  - Product dropper issue [None]
  - Eye irritation [None]

NARRATIVE: CASE EVENT DATE: 20160201
